FAERS Safety Report 24740699 (Version 2)
Quarter: 2024Q4

REPORT INFORMATION
  Report Type: Spontaneous
  Country: AU (occurrence: None)
  Receive Date: 20241217
  Receipt Date: 20241224
  Transmission Date: 20250115
  Serious: Yes (Hospitalization, Other)
  Sender: MDD OPERATIONS
  Company Number: AU-MDD US Operations-MDD202412-004645

PATIENT
  Age: 73 Year
  Sex: Female

DRUGS (8)
  1. APOMORPHINE HYDROCHLORIDE [Suspect]
     Active Substance: APOMORPHINE HYDROCHLORIDE
     Indication: Parkinson^s disease
     Dosage: NOT PROVIDED
     Route: 058
     Dates: start: 20240530
  2. APOMORPHINE HYDROCHLORIDE [Suspect]
     Active Substance: APOMORPHINE HYDROCHLORIDE
     Dosage: UNSPECIFIED INFUSION
     Route: 058
     Dates: start: 20241204
  3. QUETIAPINE [Concomitant]
     Active Substance: QUETIAPINE
     Dosage: NOT PROVIDED
  4. Madopar Rapid [Concomitant]
     Dosage: NOT PROVIDED
  5. BENSERAZIDE HYDROCHLORIDE\LEVODOPA [Concomitant]
     Active Substance: BENSERAZIDE HYDROCHLORIDE\LEVODOPA
     Dosage: NOT PROVIDED
  6. PRAMIPEXOLE [Concomitant]
     Active Substance: PRAMIPEXOLE\PRAMIPEXOLE DIHYDROCHLORIDE
     Dosage: NOT PROVIDED
  7. SINEMET [Concomitant]
     Active Substance: CARBIDOPA\LEVODOPA
     Dosage: NOT PROVIDED
  8. INSULIN NOS [Concomitant]
     Active Substance: INSULIN NOS
     Dosage: VARIOUS INSULINS

REACTIONS (7)
  - Dystonia [Unknown]
  - Hypoglycaemia [Unknown]
  - Coma [Unknown]
  - Unresponsive to stimuli [Recovered/Resolved]
  - Hallucination [Unknown]
  - Dyspnoea [Unknown]
  - Therapy interrupted [Unknown]
